FAERS Safety Report 6921395-0 (Version None)
Quarter: 2010Q3

REPORT INFORMATION
  Report Type: 
  Country: None (occurrence: None)
  Receive Date: 20100812
  Receipt Date: 20100729
  Transmission Date: 20110219
  Serious: Yes (Hospitalization)
  Sender: FDA-Public Use
  Company Number: PHHY2009AU50555

PATIENT
  Sex: Female

DRUGS (12)
  1. CLOZARIL [Suspect]
     Indication: SCHIZOAFFECTIVE DISORDER
     Dosage: 550 MG, UNK
     Route: 048
     Dates: start: 19950904
  2. CLOZARIL [Suspect]
     Dosage: UNK
  3. ESOMEPRAZOLE MAGNESIUM [Concomitant]
     Dosage: 40 MG, BID
  4. ASPIRIN [Concomitant]
     Dosage: 100 MG, UNK
  5. ATORVASTATIN [Concomitant]
     Dosage: 40 UG, UNK
     Route: 048
  6. TIOTROPIUM [Concomitant]
     Dosage: 15 UG, UNK
  7. GREOSIN [Concomitant]
     Dosage: 10 ML, UNK
  8. SERETIDE [Concomitant]
     Dosage: UNK
  9. ALBUTEROL SULFATE AUTOHALER [Concomitant]
     Dosage: UNK
  10. COLECALCIFEROL [Concomitant]
     Dosage: 1000 IU, UNK
  11. CALTRATE [Concomitant]
     Dosage: 600 MG, UNK
  12. COLOXYL WITH SENNA [Concomitant]
     Dosage: UNK

REACTIONS (5)
  - CHRONIC OBSTRUCTIVE PULMONARY DISEASE [None]
  - CONVULSION [None]
  - PNEUMONIA [None]
  - RESPIRATORY DISORDER [None]
  - RESPIRATORY FAILURE [None]
